FAERS Safety Report 10240539 (Version 1)
Quarter: 2014Q2

REPORT INFORMATION
  Report Type: Spontaneous
  Country: US (occurrence: US)
  Receive Date: 20140617
  Receipt Date: 20140617
  Transmission Date: 20141212
  Serious: Yes (Hospitalization, Other)
  Sender: FDA-Public Use
  Company Number: PHHY2014US071590

PATIENT
  Age: 55 Year
  Sex: Female
  Weight: 72 kg

DRUGS (6)
  1. DICLOFENAC [Suspect]
     Indication: PAIN
     Dosage: 100 MG, QD
     Route: 054
     Dates: start: 20130908, end: 20130909
  2. FRAGMIN [Suspect]
     Indication: ANTICOAGULANT THERAPY
     Dosage: 7200 IU, QD
     Route: 058
     Dates: start: 20130903
  3. FRAGMIN [Suspect]
     Dosage: 14400 IU, BID
     Route: 058
     Dates: start: 20130904, end: 20130905
  4. CHYMORAL [Suspect]
     Indication: SUPPLEMENTATION THERAPY
     Dosage: 1 DF, TID
     Route: 048
     Dates: start: 201309, end: 20130917
  5. PARACETAMOL [Concomitant]
     Dosage: 1 MG AND 50 MG, UNK
     Route: 042
     Dates: start: 20130907, end: 20130907
  6. TRAMADOL [Concomitant]
     Dosage: UNK UKN, UNK
     Dates: start: 20130907, end: 20130907

REACTIONS (7)
  - Postoperative wound infection [Recovered/Resolved]
  - Wound secretion [Recovered/Resolved]
  - Escherichia infection [Recovered/Resolved]
  - Post procedural haemorrhage [Recovered/Resolved]
  - Vaginal haemorrhage [Recovered/Resolved]
  - International normalised ratio increased [Unknown]
  - Prothrombin level increased [Unknown]
